FAERS Safety Report 5122830-3 (Version None)
Quarter: 2006Q4

REPORT INFORMATION
  Report Type: 
  Country: None (occurrence: None)
  Receive Date: 20061005
  Receipt Date: 20061005
  Transmission Date: 20070319
  Serious: Yes (Hospitalization)
  Sender: FDA-Public Use
  Company Number: None

PATIENT
  Sex: Male

DRUGS (2)
  1. AMBIEN [Suspect]
     Indication: INSOMNIA
     Dosage: 10 MG QHS  PO
     Route: 048
     Dates: start: 19990101
  2. AVALIDE [Concomitant]

REACTIONS (1)
  - GLOBAL AMNESIA [None]
